FAERS Safety Report 4286851-5 (Version None)
Quarter: 2004Q1

REPORT INFORMATION
  Report Type: 
  Country: None (occurrence: None)
  Receive Date: 20040206
  Receipt Date: 20030109
  Transmission Date: 20041129
  Serious: Yes (Other)
  Sender: FDA-Public Use
  Company Number: PHNU2003DE00467

PATIENT
  Age: 17 Year
  Sex: Female

DRUGS (3)
  1. CLOZARIL [Suspect]
     Indication: PSYCHOTIC DISORDER
     Dosage: 25MG/DAY
     Route: 048
     Dates: start: 20030115, end: 20030120
  2. CLOZARIL [Suspect]
     Dosage: 12.5MG/DAY
     Route: 048
     Dates: start: 20030121, end: 20030201
  3. CLOZARIL [Suspect]
     Dosage: UP TO 50MG/DAY
     Route: 048
     Dates: start: 19990101, end: 20030114

REACTIONS (2)
  - ABORTION [None]
  - DRUG EXPOSURE DURING PREGNANCY [None]
